FAERS Safety Report 5799432-9 (Version None)
Quarter: 2008Q3

REPORT INFORMATION
  Report Type: 
  Country: None (occurrence: None)
  Receive Date: 20080703
  Receipt Date: 20080630
  Transmission Date: 20090109
  Serious: Yes (Hospitalization, Other)
  Sender: FDA-Public Use
  Company Number: JP-BRISTOL-MYERS SQUIBB COMPANY-14245526

PATIENT
  Age: 25 Year
  Sex: Male

DRUGS (24)
  1. FUNGIZONE [Suspect]
     Indication: BRONCHOPULMONARY ASPERGILLOSIS
     Dosage: THERAPY DATES: 12OCT07-26OCT07 (15 DAYS), 29OCT07-30OCT07 (2 DAYS)
     Dates: start: 20071012, end: 20071030
  2. VEPESID [Suspect]
     Route: 042
     Dates: start: 20071129, end: 20071201
  3. AMBISOME [Suspect]
     Indication: BRONCHOPULMONARY ASPERGILLOSIS
     Dosage: THERAPY DATES: 21SEP07-11OCT07 (21 DAYS),27OCT07-28OCT07 (2 DAYS), 01NOV07-26DEC07 (56 DAYS)
     Route: 042
     Dates: start: 20070921, end: 20071226
  4. HABEKACIN [Suspect]
     Dates: start: 20071209, end: 20071214
  5. CARBENIN [Suspect]
     Indication: PNEUMONIA BACTERIAL
     Dosage: 2 GM (1 IN 1DAY) FROM 27SEP07-24OCT07 (28 DAYS) FOR; 200MG (1 IN 1 DAY) 05DEC07-CONT. FOR PNEUMONIA
     Route: 042
     Dates: start: 20070927
  6. CARBENIN [Suspect]
     Indication: PNEUMONIA
     Dosage: 2 GM (1 IN 1DAY) FROM 27SEP07-24OCT07 (28 DAYS) FOR; 200MG (1 IN 1 DAY) 05DEC07-CONT. FOR PNEUMONIA
     Route: 042
     Dates: start: 20070927
  7. DALACIN-S [Suspect]
     Dates: start: 20071208, end: 20071216
  8. DECADRON [Suspect]
     Dosage: 4 MG (1 IN 1 DAY) 29NOV07-29NOV07; 40MG (1 IN 1 DAY) 29NOV07-01DEC07.
     Dates: start: 20071129, end: 20071201
  9. CYLOCIDE [Suspect]
     Dates: start: 20071129, end: 20071201
  10. METHOTREXATE [Suspect]
     Dates: start: 20071129, end: 20071129
  11. ITRIZOLE [Concomitant]
     Dosage: THERAPY DATES: NI-07SEP07 200 MG (1 IN 1 DAY), 200MG (1 IN 1 DAY) 27DEC07-CONT.
     Route: 048
  12. VFEND [Concomitant]
     Dosage: 600 MG (600 MG 1 IN 1 DAY) 07SEP07-07SEP07 (1 DAY); 400MG (1 IN 1 DAY) 08SEP07-21SEP07 (14 DAYS).
     Route: 048
     Dates: start: 20070907, end: 20070921
  13. HEPARIN [Concomitant]
     Indication: DEEP VEIN THROMBOSIS
     Route: 042
     Dates: start: 20071031
  14. TAKEPRON [Concomitant]
     Route: 048
     Dates: start: 20071202
  15. LEVOFLOXACIN [Concomitant]
     Route: 048
     Dates: start: 20071203, end: 20071205
  16. PLATELET CONCENTRATE, HUMAN [Concomitant]
     Indication: THROMBOCYTOPENIA
     Route: 042
     Dates: start: 20071207, end: 20071211
  17. FUNGUARD [Concomitant]
     Route: 042
     Dates: start: 20071208, end: 20071216
  18. VANCOMYCIN [Concomitant]
     Route: 042
     Dates: start: 20071208, end: 20071216
  19. CONCENTRATED RED BLOOD CELLS [Concomitant]
     Route: 042
     Dates: start: 20071208, end: 20071208
  20. ALBUMINAR [Concomitant]
  21. RED BLOOD CELLS [Concomitant]
     Dates: start: 20070921, end: 20070921
  22. POTASSIUM CHLORIDE [Concomitant]
     Dates: start: 20070927
  23. CHLORPROMAZINE HCL [Concomitant]
     Indication: HICCUPS
     Dates: start: 20071130
  24. GRAN [Concomitant]
     Indication: NEUTROPENIA
     Dates: start: 20071207

REACTIONS (9)
  - ANAEMIA [None]
  - DEEP VEIN THROMBOSIS [None]
  - HYPOKALAEMIA [None]
  - NEUTROPENIA [None]
  - PNEUMONIA [None]
  - PNEUMONIA BACTERIAL [None]
  - PSEUDOMEMBRANOUS COLITIS [None]
  - RENAL IMPAIRMENT [None]
  - THROMBOCYTOPENIA [None]
